FAERS Safety Report 20541422 (Version 2)
Quarter: 2022Q1

REPORT INFORMATION
  Report Type: Report from Study
  Country: US (occurrence: None)
  Receive Date: 20220302
  Receipt Date: 20220310
  Transmission Date: 20220424
  Serious: Yes (Hospitalization)
  Sender: FDA-Public Use
  Company Number: US-Eisai Medical Research-EC-2022-109434

PATIENT
  Age: 43 Year
  Sex: Male

DRUGS (1)
  1. LENVIMA [Suspect]
     Active Substance: LENVATINIB
     Indication: Hepatocellular carcinoma
     Route: 048
     Dates: start: 20220218, end: 20220220

REACTIONS (2)
  - Abdominal pain [Unknown]
  - Nausea [Unknown]

NARRATIVE: CASE EVENT DATE: 20220221
